FAERS Safety Report 4740368-X (Version None)
Quarter: 2005Q3

REPORT INFORMATION
  Report Type: 
  Country: None (occurrence: None)
  Receive Date: 20050803
  Receipt Date: 20050407
  Transmission Date: 20060218
  Serious: Yes (Other)
  Sender: FDA-Public Use
  Company Number: 2005-04-0754

PATIENT
  Age: 46 Year
  Sex: Male
  Weight: 90.7194 kg

DRUGS (1)
  1. INTERFERON INJECTABLE [Suspect]
     Indication: HEPATITIS C
     Dates: start: 19990101

REACTIONS (1)
  - RENAL FAILURE [None]
